FAERS Safety Report 16065081 (Version 2)
Quarter: 2019Q2

REPORT INFORMATION
  Report Type: Spontaneous
  Country: US (occurrence: US)
  Receive Date: 20190313
  Receipt Date: 20190503
  Transmission Date: 20190711
  Serious: Yes (Death, Hospitalization, Other)
  Sender: FDA-Public Use
  Company Number: US-BRISTOL-MYERS SQUIBB COMPANY-BMS-2019-024539

PATIENT
  Age: 40 Year
  Sex: Male
  Weight: 90 kg

DRUGS (1)
  1. HYDREA [Suspect]
     Active Substance: HYDROXYUREA
     Indication: LEUKOCYTOSIS
     Dosage: 1 GRAM, Q6H
     Route: 048
     Dates: start: 20181016

REACTIONS (12)
  - Prescribed overdose [Unknown]
  - Pyrexia [Not Recovered/Not Resolved]
  - Enterococcal infection [Unknown]
  - Decreased appetite [Not Recovered/Not Resolved]
  - Stomatitis [Recovered/Resolved]
  - Pneumonia [Fatal]
  - Oropharyngeal pain [Recovered/Resolved]
  - Blast cells present [Unknown]
  - Epistaxis [Recovered/Resolved]
  - Speech disorder [Unknown]
  - Staphylococcal infection [Unknown]
  - Off label use [Unknown]

NARRATIVE: CASE EVENT DATE: 20181022
